FAERS Safety Report 16196962 (Version 1)
Quarter: 2019Q2

REPORT INFORMATION
  Report Type: Spontaneous
  Country: US (occurrence: US)
  Receive Date: 20190311
  Receipt Date: 20190311
  Transmission Date: 20190711
  Serious: No
  Sender: FDA-Public Use
  Company Number: None

PATIENT
  Age: 53 Year
  Sex: Female

DRUGS (6)
  1. TYKERB [Suspect]
     Active Substance: LAPATINIB DITOSYLATE
     Indication: BREAST CANCER
     Dosage: ?          OTHER FREQUENCY:OTHER;?
     Route: 048
  2. MAGNESIUM CHLORIDE TABS [Concomitant]
  3. CITRIACAL/VITAMIN D [Concomitant]
  4. TYKERB [Concomitant]
     Active Substance: LAPATINIB DITOSYLATE
  5. PANTOPRAZOLE [Concomitant]
     Active Substance: PANTOPRAZOLE
  6. LORAZEPAM. [Concomitant]
     Active Substance: LORAZEPAM

REACTIONS (1)
  - Oedema [None]

NARRATIVE: CASE EVENT DATE: 20190311
